FAERS Safety Report 18322407 (Version 1)
Quarter: 2020Q3

REPORT INFORMATION
  Report Type: Spontaneous
  Country: DE (occurrence: DE)
  Receive Date: 20200928
  Receipt Date: 20200928
  Transmission Date: 20201103
  Serious: Yes (Other)
  Sender: FDA-Public Use
  Company Number: DE-ELI_LILLY_AND_COMPANY-DE202009008902

PATIENT
  Sex: Female

DRUGS (2)
  1. OLANZAPINE. [Suspect]
     Active Substance: OLANZAPINE
     Indication: DEPRESSION
     Dosage: 5 MG, UNKNOWN
     Route: 065
  2. IMIPRAMINE [Suspect]
     Active Substance: IMIPRAMINE
     Indication: DEPRESSION
     Dosage: 75 MG, UNKNOWN
     Route: 065

REACTIONS (1)
  - Weight increased [Unknown]
